FAERS Safety Report 17980772 (Version 1)
Quarter: 2020Q3

REPORT INFORMATION
  Report Type: Spontaneous
  Country: UY (occurrence: UY)
  Receive Date: 20200704
  Receipt Date: 20200704
  Transmission Date: 20201103
  Serious: Yes (Other)
  Sender: FDA-Public Use
  Company Number: UY-ROCHE-2634134

PATIENT
  Age: 33 Year
  Sex: Female

DRUGS (3)
  1. TRASTUZUMAB. [Suspect]
     Active Substance: TRASTUZUMAB
     Indication: PRODUCT USED FOR UNKNOWN INDICATION
     Route: 042
  2. HERCEPTIN [Suspect]
     Active Substance: TRASTUZUMAB
     Indication: PRODUCT USED FOR UNKNOWN INDICATION
     Route: 042
  3. PERTUZUMAB. [Suspect]
     Active Substance: PERTUZUMAB
     Indication: PRODUCT USED FOR UNKNOWN INDICATION
     Route: 042

REACTIONS (6)
  - Gastritis [Recovered/Resolved]
  - Laryngeal oedema [Recovered/Resolved]
  - Eructation [Recovered/Resolved]
  - Nasal discomfort [Recovered/Resolved]
  - Rash [Recovering/Resolving]
  - Ear discomfort [Recovered/Resolved]

NARRATIVE: CASE EVENT DATE: 202005
